FAERS Safety Report 24973466 (Version 1)
Quarter: 2025Q1

REPORT INFORMATION
  Report Type: Report from Study
  Country: US (occurrence: US)
  Receive Date: 20250216
  Receipt Date: 20250216
  Transmission Date: 20250409
  Serious: Yes (Other)
  Sender: ABBVIE
  Company Number: US-ABBVIE-6131285

PATIENT
  Sex: Female

DRUGS (1)
  1. RINVOQ [Suspect]
     Active Substance: UPADACITINIB
     Indication: Psoriatic arthropathy
     Route: 048
     Dates: start: 20231114

REACTIONS (4)
  - Carpal tunnel syndrome [Recovering/Resolving]
  - Arthropathy [Not Recovered/Not Resolved]
  - Post procedural swelling [Unknown]
  - Procedural pain [Unknown]
